FAERS Safety Report 7930467-3 (Version None)
Quarter: 2011Q4

REPORT INFORMATION
  Report Type: 
  Country: None (occurrence: None)
  Receive Date: 20111121
  Receipt Date: 20111109
  Transmission Date: 20120403
  Serious: Yes (Hospitalization, Other)
  Sender: FDA-Public Use
  Company Number: JP-UCBSA-045484

PATIENT
  Age: 68 Year
  Sex: Male
  Weight: 60.8 kg

DRUGS (5)
  1. AMPICILLIN SODIUM/SULBACTAM SODIUM [Suspect]
     Indication: PNEUMONIA ASPIRATION
     Route: 042
     Dates: start: 20111104, end: 20111107
  2. KEPPRA [Suspect]
     Indication: EPILEPSY
     Route: 048
     Dates: start: 20111102, end: 20111107
  3. OZAMARIN [Concomitant]
     Indication: CEREBRAL INFARCTION
     Dosage: DAILY DOSE:160MG
     Route: 042
     Dates: start: 20111102
  4. KEPPRA [Suspect]
     Route: 048
     Dates: start: 20110506, end: 20110522
  5. RADICUT [Concomitant]
     Indication: CEREBRAL INFARCTION
     Dosage: DAILY DOSE:60MG
     Route: 042
     Dates: start: 20111102

REACTIONS (1)
  - NEUTROPHIL COUNT DECREASED [None]
